FAERS Safety Report 23763284 (Version 1)
Quarter: 2024Q2

REPORT INFORMATION
  Report Type: Spontaneous
  Country: US (occurrence: US)
  Receive Date: 20240419
  Receipt Date: 20240419
  Transmission Date: 20240716
  Serious: No
  Sender: FDA-Public Use
  Company Number: None

PATIENT
  Age: 80 Year
  Sex: Female

DRUGS (4)
  1. CARBIDOPA\LEVODOPA [Suspect]
     Active Substance: CARBIDOPA\LEVODOPA
     Indication: Resting tremor
     Dosage: 1 TABLET 4 TIMES A DAY
  2. CARBIDOPA\LEVODOPA [Suspect]
     Active Substance: CARBIDOPA\LEVODOPA
     Dosage: INCREASE THE DOSE OF C/L TO 2 TABLETS 5 TIMES A DAY
  3. CARBIDOPA\LEVODOPA [Suspect]
     Active Substance: CARBIDOPA\LEVODOPA
     Dosage: DOSE WAS THEN INCREASED TO 1.5 TABLETS 4 TIMES A DAY
  4. CARBIDOPA\LEVODOPA [Suspect]
     Active Substance: CARBIDOPA\LEVODOPA
     Dosage: AUGMENTED TO 2 TABLETS 4 TIMES A DAY

REACTIONS (4)
  - Fall [Unknown]
  - Hyperhidrosis [Unknown]
  - Dyskinesia [Recovering/Resolving]
  - Hot flush [Unknown]
